FAERS Safety Report 9730820 (Version 1)
Quarter: 2013Q4

REPORT INFORMATION
  Report Type: Spontaneous
  Country: US (occurrence: US)
  Receive Date: 20131203
  Receipt Date: 20131203
  Transmission Date: 20140711
  Serious: No
  Sender: FDA-Public Use
  Company Number: US-B.I. PHARMACEUTICALS,INC./RIDGEFIELD-2013-BI-38359BP

PATIENT
  Age: 63 Year
  Sex: Male
  Weight: 88 kg

DRUGS (8)
  1. MOBIC [Suspect]
     Indication: OSTEOARTHRITIS
     Dosage: 7.5 MG
     Route: 048
     Dates: start: 2011
  2. LIPITOR [Concomitant]
     Indication: BLOOD CHOLESTEROL INCREASED
     Dosage: 40 MG
     Route: 048
     Dates: start: 2003
  3. RISPERIDONE [Concomitant]
     Indication: BIPOLAR DISORDER
     Dosage: 1 MG
     Route: 048
     Dates: start: 2008
  4. SKELAXIN [Concomitant]
     Indication: MUSCLE SPASMS
     Route: 048
     Dates: start: 2011
  5. LISINOPRIL [Concomitant]
     Indication: HYPERTENSION
     Dosage: 20 MG
     Route: 048
     Dates: start: 2008
  6. PAXIL [Concomitant]
     Indication: BIPOLAR DISORDER
     Dosage: 40 MG
     Route: 048
     Dates: start: 2003
  7. ADDERAL XL [Concomitant]
     Indication: ATTENTION DEFICIT/HYPERACTIVITY DISORDER
     Dosage: 20 MG
     Route: 048
     Dates: start: 2008
  8. CHLORTHALIDONE [Concomitant]
     Indication: NEPHROLITHIASIS
     Dosage: 25 MG
     Route: 048
     Dates: start: 2011

REACTIONS (1)
  - Nephrolithiasis [Recovered/Resolved]
